FAERS Safety Report 7942069-3 (Version None)
Quarter: 2011Q4

REPORT INFORMATION
  Report Type: 
  Country: None (occurrence: None)
  Receive Date: 20111128
  Receipt Date: 20111128
  Transmission Date: 20120403
  Serious: Yes (Hospitalization)
  Sender: FDA-Public Use
  Company Number: None

PATIENT
  Age: 81 Year
  Sex: Male
  Weight: 78.017 kg

DRUGS (1)
  1. NITROFURANTOIN MACROCRYSTALLINE [Suspect]
     Indication: INFECTION PROPHYLAXIS
     Dosage: 1 CAPSULE
     Route: 048
     Dates: start: 20100515, end: 20111005

REACTIONS (6)
  - PNEUMONIA [None]
  - WEIGHT DECREASED [None]
  - INFLUENZA [None]
  - HYPOXIA [None]
  - DECREASED APPETITE [None]
  - PULMONARY FIBROSIS [None]
